FAERS Safety Report 5173439-7 (Version None)
Quarter: 2006Q4

REPORT INFORMATION
  Report Type: 
  Country: None (occurrence: None)
  Receive Date: 20061214
  Receipt Date: 20061127
  Transmission Date: 20070319
  Serious: Yes (Hospitalization)
  Sender: FDA-Public Use
  Company Number: SG-RB-004510-06

PATIENT
  Sex: Male

DRUGS (1)
  1. SUBUTEX [Suspect]
     Indication: DRUG DEPENDENCE
     Dosage: DOSAGE UNKNOWN
     Route: 042

REACTIONS (3)
  - ARTHRITIS BACTERIAL [None]
  - DRUG ABUSER [None]
  - STAPHYLOCOCCAL INFECTION [None]
